FAERS Safety Report 8854550 (Version 1)
Quarter: 2012Q4

REPORT INFORMATION
  Report Type: 
  Country: US (occurrence: US)
  Receive Date: 20121023
  Receipt Date: 20121023
  Transmission Date: 20130627
  Serious: No
  Sender: FDA-Public Use
  Company Number: US-VERTEX PHARMACEUTICAL INC.-2012-022943

PATIENT
  Sex: Male
  Weight: 77 kg

DRUGS (5)
  1. INCIVEK [Suspect]
     Indication: HEPATITIS C
     Dosage: 750 mg, tid
     Route: 048
     Dates: start: 20120814
  2. RIBAVIRIN [Suspect]
     Indication: HEPATITIS C
     Dosage: 400 mg, bid
     Route: 048
     Dates: start: 20120814
  3. RIBAVIRIN [Suspect]
     Dosage: 200 mg, bid
     Route: 048
  4. PEGASYS [Suspect]
     Indication: HEPATITIS C
     Dosage: 90 ?g, qw
     Route: 058
     Dates: start: 20120814
  5. PEGASYS [Suspect]
     Dosage: 180 ?g, qw
     Route: 058

REACTIONS (1)
  - Haemoglobin decreased [Not Recovered/Not Resolved]
